FAERS Safety Report 13891302 (Version 1)
Quarter: 2017Q3

REPORT INFORMATION
  Report Type: Spontaneous
  Country: US (occurrence: US)
  Receive Date: 20170822
  Receipt Date: 20170822
  Transmission Date: 20171127
  Serious: Yes (Hospitalization)
  Sender: FDA-Public Use
  Company Number: US-BAYER-2017-156089

PATIENT
  Sex: Male
  Weight: 2.19 kg

DRUGS (5)
  1. HUMALOG [INSULIN LISPRO] [Concomitant]
     Route: 064
  2. METFORMIN [Concomitant]
     Active Substance: METFORMIN HYDROCHLORIDE
     Route: 064
  3. NORVASC [Concomitant]
     Active Substance: AMLODIPINE BESYLATE
     Dosage: UNK
     Route: 064
  4. LANTUS [Concomitant]
     Active Substance: INSULIN GLARGINE
     Route: 064
  5. ACETYLSALICYLIC ACID({=100 MG) [Suspect]
     Active Substance: ASPIRIN
     Route: 064

REACTIONS (4)
  - Low birth weight baby [None]
  - Apgar score low [None]
  - Premature baby [None]
  - Foetal exposure during pregnancy [None]
